FAERS Safety Report 6198904-5 (Version None)
Quarter: 2009Q2

REPORT INFORMATION
  Report Type: 
  Country: None (occurrence: None)
  Receive Date: 20090520
  Receipt Date: 20090520
  Transmission Date: 20091009
  Serious: Yes (Life-Threatening, Hospitalization, Disabling, Other)
  Sender: FDA-Public Use
  Company Number: None

PATIENT
  Age: 50 Year
  Sex: Female
  Weight: 54.4316 kg

DRUGS (1)
  1. ARTANE [Suspect]

REACTIONS (3)
  - ANAPHYLACTIC REACTION [None]
  - APPARENT LIFE THREATENING EVENT [None]
  - THROAT TIGHTNESS [None]
